FAERS Safety Report 5269016-X (Version None)
Quarter: 2007Q1

REPORT INFORMATION
  Report Type: 
  Country: None (occurrence: None)
  Receive Date: 20061212
  Receipt Date: 20051011
  Transmission Date: 20070707
  Serious: No
  Sender: FDA-Public Use
  Company Number: 2005UW15256

PATIENT
  Sex: Male

DRUGS (1)
  1. PULMICORT [Suspect]
     Indication: ASTHMA
     Dates: start: 20001201, end: 20030101

REACTIONS (3)
  - ADRENAL SUPPRESSION [None]
  - ANKLE FRACTURE [None]
  - GROWTH RETARDATION [None]
